FAERS Safety Report 4795844-0 (Version None)
Quarter: 2005Q4

REPORT INFORMATION
  Report Type: 
  Country: None (occurrence: None)
  Receive Date: 20051012
  Receipt Date: 20050926
  Transmission Date: 20060501
  Serious: Yes (Other)
  Sender: FDA-Public Use
  Company Number: 200518774GDDC

PATIENT
  Age: 26 Year
  Sex: Male

DRUGS (2)
  1. KETEK [Suspect]
     Indication: SINUSITIS
     Route: 048
     Dates: start: 20050824, end: 20050828
  2. DECADRON [Concomitant]
     Indication: SINUSITIS
     Dosage: DOSE: NASAL 20 ML, 2 NEB IN EACH NARE
     Route: 045
     Dates: start: 20050824, end: 20050826

REACTIONS (1)
  - ANOSMIA [None]
